FAERS Safety Report 9175236 (Version 2)
Quarter: 2013Q3

REPORT INFORMATION
  Report Type: Report from Study
  Country: JP (occurrence: JP)
  Receive Date: 20130320
  Receipt Date: 20130722
  Transmission Date: 20140515
  Serious: Yes (Death)
  Sender: FDA-Public Use
  Company Number: JP-009507513-1303JPN008828

PATIENT
  Age: 43 Year
  Sex: Male
  Weight: 65 kg

DRUGS (5)
  1. TEMODAL INFUSION 100MG [Suspect]
     Indication: GLIOBLASTOMA MULTIFORME
     Dosage: 150 MG/M2, QD
     Route: 041
     Dates: start: 20110602, end: 20110606
  2. TEMODAL INFUSION 100MG [Suspect]
     Dosage: 150 MG/M2, QD
     Route: 041
     Dates: start: 20110429, end: 20110503
  3. TEMODAL [Suspect]
     Indication: GLIOBLASTOMA MULTIFORME
     Dosage: DAILY DOSE UNKNOWN
     Route: 048
     Dates: start: 20101012, end: 20110329
  4. GLYCEOL (FRUCTOSE (+) GLYCERIN (+) SODIUM CHLORIDE) [Concomitant]
     Dosage: UNK
     Route: 041
     Dates: start: 20110421, end: 20110702
  5. RINDERON (BETAMETHASONE SODIUM PHOSPHATE) [Concomitant]
     Dosage: DAILY DOSE UNKNOWN
     Route: 042
     Dates: start: 20110421, end: 20110702

REACTIONS (8)
  - Disease progression [Fatal]
  - Hyponatraemia [Recovered/Resolved]
  - Hypochloraemia [Recovered/Resolved]
  - Red blood cell count decreased [Not Recovered/Not Resolved]
  - White blood cell count decreased [Recovered/Resolved]
  - Platelet count decreased [Not Recovered/Not Resolved]
  - Aspartate aminotransferase increased [Not Recovered/Not Resolved]
  - Alanine aminotransferase increased [Not Recovered/Not Resolved]
